FAERS Safety Report 11762803 (Version 1)
Quarter: 2015Q4

REPORT INFORMATION
  Report Type: Spontaneous
  Country: US (occurrence: US)
  Receive Date: 20151120
  Receipt Date: 20151120
  Transmission Date: 20160304
  Serious: No
  Sender: FDA-Public Use
  Company Number: US-ELI_LILLY_AND_COMPANY-US201302002365

PATIENT
  Sex: Female

DRUGS (1)
  1. FORTEO [Suspect]
     Active Substance: TERIPARATIDE
     Indication: OSTEOPOROSIS
     Dosage: UNK, QD

REACTIONS (8)
  - Skin disorder [Not Recovered/Not Resolved]
  - Increased tendency to bruise [Not Recovered/Not Resolved]
  - Skin injury [Unknown]
  - Pruritus generalised [Not Recovered/Not Resolved]
  - Alopecia [Unknown]
  - Dry skin [Unknown]
  - Injury [Unknown]
  - Fall [Unknown]
